FAERS Safety Report 16572609 (Version 1)
Quarter: 2019Q3

REPORT INFORMATION
  Report Type: Spontaneous
  Country: US (occurrence: US)
  Receive Date: 20190715
  Receipt Date: 20190715
  Transmission Date: 20191004
  Serious: No
  Sender: FDA-Public Use
  Company Number: US-SA-2019SA183757

PATIENT
  Age: 46 Year
  Sex: Female

DRUGS (4)
  1. TOUJEO [Suspect]
     Active Substance: INSULIN GLARGINE
     Dosage: 65 UNK
     Route: 058
  2. TOUJEO [Suspect]
     Active Substance: INSULIN GLARGINE
     Dosage: 70 U, QD
     Route: 058
  3. TOUJEO [Suspect]
     Active Substance: INSULIN GLARGINE
     Indication: TYPE 2 DIABETES MELLITUS
     Dosage: 60 U, QD
     Route: 058
     Dates: start: 201810
  4. PREDNISONE. [Suspect]
     Active Substance: PREDNISONE
     Route: 065

REACTIONS (5)
  - Incorrect dose administered by product [Unknown]
  - Device operational issue [Unknown]
  - Wrong technique in product usage process [Unknown]
  - Unevaluable event [Unknown]
  - Blood glucose increased [Unknown]
